FAERS Safety Report 6640516-0 (Version None)
Quarter: 2010Q1

REPORT INFORMATION
  Report Type: 
  Country: None (occurrence: None)
  Receive Date: 20100318
  Receipt Date: 20100310
  Transmission Date: 20100710
  Serious: Yes (Hospitalization)
  Sender: FDA-Public Use
  Company Number: US-JNJFOC-20100300612

PATIENT
  Sex: Male
  Weight: 55.34 kg

DRUGS (8)
  1. INFLIXIMAB [Suspect]
     Indication: CROHN'S DISEASE
     Dosage: STARTED INFLIXIMAB IN THE FALL OF 2008
     Route: 042
  2. PREDNISONE [Concomitant]
  3. COLAZAL [Concomitant]
     Dosage: WEANED DOWN FROM TID
  4. IRON [Concomitant]
  5. MULTI-VITAMINS [Concomitant]
  6. CALCIUM [Concomitant]
  7. ACIDOPHILUS [Concomitant]
  8. 5-AMINOSALICYLIC ACID [Concomitant]
     Route: 048

REACTIONS (2)
  - ANAL ABSCESS [None]
  - CROHN'S DISEASE [None]
